FAERS Safety Report 9094301 (Version 2)
Quarter: 2013Q1

REPORT INFORMATION
  Report Type: Spontaneous
  Country: FR (occurrence: FR)
  Receive Date: 20130219
  Receipt Date: 20130305
  Transmission Date: 20140127
  Serious: No
  Sender: FDA-Public Use
  Company Number: FR-ASTRAZENECA-2013SE10641

PATIENT
  Age: 5 Month
  Sex: Male

DRUGS (1)
  1. SYNAGIS [Suspect]
     Route: 030

REACTIONS (3)
  - Bronchiolitis [Recovered/Resolved]
  - Malaise [Recovered/Resolved]
  - Unevaluable event [Recovered/Resolved]
